FAERS Safety Report 9695656 (Version 3)
Quarter: 2014Q2

REPORT INFORMATION
  Report Type: Spontaneous
  Country: FR (occurrence: FR)
  Receive Date: 20131119
  Receipt Date: 20140416
  Transmission Date: 20141212
  Serious: Yes (Hospitalization)
  Sender: FDA-Public Use
  Company Number: FR-PFIZER INC-2013324591

PATIENT
  Age: 65 Year
  Sex: Male

DRUGS (4)
  1. FELDENE [Suspect]
     Indication: ANKYLOSING SPONDYLITIS
     Dosage: 20 MG, 1X/DAY
     Route: 048
     Dates: start: 2008, end: 20131001
  2. SOLUPRED [Interacting]
     Indication: SCIATICA
     Dosage: 20 MG, 3X/DAY
     Route: 048
     Dates: start: 201309, end: 20131001
  3. MOPRAL [Concomitant]
     Dosage: 20 MG, 1X/DAY
     Route: 048
     Dates: start: 2008, end: 20131001
  4. EFFERALGAN CODEINE [Concomitant]
     Dosage: 1 DF, 3X/DAY
     Route: 048
     Dates: end: 20131001

REACTIONS (5)
  - Drug interaction [Recovered/Resolved with Sequelae]
  - Colitis [Recovered/Resolved with Sequelae]
  - Large intestine perforation [Recovered/Resolved with Sequelae]
  - Large intestinal obstruction [Recovered/Resolved with Sequelae]
  - Abscess intestinal [Recovered/Resolved with Sequelae]
